FAERS Safety Report 18640001 (Version 1)
Quarter: 2020Q4

REPORT INFORMATION
  Report Type: Spontaneous
  Country: US (occurrence: US)
  Receive Date: 20201220
  Receipt Date: 20201220
  Transmission Date: 20210114
  Serious: No
  Sender: FDA-Public Use
  Company Number: US-PACIRA-202000334

PATIENT
  Age: 72 Year
  Sex: Male

DRUGS (3)
  1. EXPAREL [Suspect]
     Active Substance: BUPIVACAINE
     Indication: ANAL DILATION PROCEDURE
     Dosage: 6 ML
     Route: 054
     Dates: start: 20200817, end: 20200817
  2. LIDOCAINE. [Suspect]
     Active Substance: LIDOCAINE
     Indication: ANAL DILATION PROCEDURE
     Dosage: 5 ML MIXED WITH 5 ML OF 0.5% BUPIVACAINE; 4 ML OF ADMIXTURE ADMINISTERED
     Route: 054
     Dates: start: 20200817, end: 20200817
  3. BUPIVACAINE. [Suspect]
     Active Substance: BUPIVACAINE
     Indication: ANAL DILATION PROCEDURE
     Dosage: 5 ML MIXED WITH 5 ML OF LIDOCAINE 0.1%; 4 ML OF ADMIXTURE ADMINISTERED
     Route: 054
     Dates: start: 20200817, end: 20200817

REACTIONS (2)
  - Labelled drug-drug interaction medication error [Unknown]
  - No adverse event [Unknown]

NARRATIVE: CASE EVENT DATE: 20200817
